FAERS Safety Report 6275920-6 (Version None)
Quarter: 2009Q3

REPORT INFORMATION
  Report Type: 
  Country: None (occurrence: None)
  Receive Date: 20090720
  Receipt Date: 20090708
  Transmission Date: 20100115
  Serious: No
  Sender: FDA-Public Use
  Company Number: APP200900389

PATIENT

DRUGS (4)
  1. SENSORCAINE [Suspect]
     Indication: PROCEDURAL PAIN
     Dosage: CONTINOUS VIA PUMP
     Dates: start: 20040603
  2. MARCAINE [Suspect]
     Indication: PROCEDURAL PAIN
     Dosage: CONTINOUS VIA PAIN PUMP
     Dates: start: 20050721
  3. MARCAINE [Suspect]
     Indication: PROCEDURAL PAIN
     Dosage: CONTINOUS VIA PAIN PUMP
     Dates: start: 20070603
  4. BREG PAIN PUMP [Suspect]
     Indication: PROCEDURAL PAIN
     Dates: start: 20090603

REACTIONS (2)
  - MULTIPLE INJURIES [None]
  - PROCEDURAL COMPLICATION [None]
